FAERS Safety Report 6298111-1 (Version None)
Quarter: 2009Q3

REPORT INFORMATION
  Report Type: 
  Country: None (occurrence: None)
  Receive Date: 20090805
  Receipt Date: 20090729
  Transmission Date: 20100115
  Serious: Yes (Other)
  Sender: FDA-Public Use
  Company Number: PHHY2009DE31687

PATIENT
  Sex: Female

DRUGS (2)
  1. DIOVAN [Suspect]
     Dosage: 80 MG PER DAY
     Dates: start: 20020101
  2. MARCUMAR [Concomitant]

REACTIONS (2)
  - GENITAL DISORDER FEMALE [None]
  - SKIN EXFOLIATION [None]
